FAERS Safety Report 16963626 (Version 2)
Quarter: 2019Q4

REPORT INFORMATION
  Report Type: Report from Study
  Country: PE (occurrence: PE)
  Receive Date: 20191025
  Receipt Date: 20191101
  Transmission Date: 20200122
  Serious: Yes (Other)
  Sender: FDA-Public Use
  Company Number: NVSC2019PE016878

PATIENT
  Sex: Female

DRUGS (1)
  1. AFINITOR [Suspect]
     Active Substance: EVEROLIMUS
     Indication: BREAST CANCER METASTATIC
     Dosage: 10 MG, QD
     Route: 048
     Dates: start: 201802, end: 20191018

REACTIONS (3)
  - Skin lesion [Unknown]
  - Anxiety [Unknown]
  - Bone lesion [Unknown]

NARRATIVE: CASE EVENT DATE: 2019
